FAERS Safety Report 5309046-2 (Version None)
Quarter: 2007Q2

REPORT INFORMATION
  Report Type: 
  Country: None (occurrence: None)
  Receive Date: 20070426
  Receipt Date: 20070417
  Transmission Date: 20071010
  Serious: Yes (Other)
  Sender: FDA-Public Use
  Company Number: JP-ABBOTT-07P-087-0365181-00

PATIENT
  Sex: Male
  Weight: 72 kg

DRUGS (16)
  1. SEVOFLURANE [Suspect]
     Indication: GENERAL ANAESTHESIA
     Route: 055
     Dates: start: 20070411, end: 20070411
  2. SEVOFLURANE [Suspect]
     Route: 055
     Dates: start: 20070411, end: 20070411
  3. MIDAZOLAM HCL [Concomitant]
     Indication: PREMEDICATION
     Route: 042
     Dates: start: 20070411, end: 20070411
  4. MIDAZOLAM HCL [Concomitant]
     Indication: SEDATION
  5. MIDAZOLAM HCL [Concomitant]
     Indication: INDUCTION OF ANAESTHESIA
  6. KETAMINE HYDROCHLORIDE [Concomitant]
     Indication: SEDATION
     Route: 042
     Dates: start: 20070411, end: 20070411
  7. FENTANYL [Concomitant]
     Indication: SEDATION
     Route: 042
     Dates: start: 20070411, end: 20070411
  8. VECURONIUM BROMIDE [Concomitant]
     Indication: SEDATION
     Route: 042
     Dates: start: 20070411, end: 20070411
  9. VECURONIUM BROMIDE [Concomitant]
     Indication: INDUCTION OF ANAESTHESIA
  10. LIDOCAINE [Concomitant]
     Indication: SEDATION
     Route: 008
     Dates: start: 20070411, end: 20070411
  11. BUPIVACAINE HYDROCHLORIDE [Concomitant]
     Indication: SEDATION
     Route: 008
     Dates: start: 20070411, end: 20070411
  12. NITROUS OXIDE W/ OXYGEN [Concomitant]
     Indication: GENERAL ANAESTHESIA
     Route: 055
     Dates: start: 20070411, end: 20070411
  13. OXYGEN [Concomitant]
     Indication: DRUG USE FOR UNKNOWN INDICATION
     Dates: start: 20070411
  14. ATROPINE SULFATE [Concomitant]
     Indication: DRUG USE FOR UNKNOWN INDICATION
     Dates: start: 20070411, end: 20070411
  15. VAGOSTIGMIN [Concomitant]
     Indication: DRUG USE FOR UNKNOWN INDICATION
     Dates: start: 20070411, end: 20070411
  16. DOXAPRAM [Concomitant]
     Indication: DRUG USE FOR UNKNOWN INDICATION
     Dates: start: 20070411, end: 20070411

REACTIONS (5)
  - BLOOD PRESSURE INCREASED [None]
  - CARBON DIOXIDE INCREASED [None]
  - FACE OEDEMA [None]
  - HAEMORRHAGE [None]
  - HYPERTHERMIA MALIGNANT [None]
